FAERS Safety Report 4831551-3 (Version None)
Quarter: 2005Q4

REPORT INFORMATION
  Report Type: 
  Country: None (occurrence: None)
  Receive Date: 20051118
  Receipt Date: 20051107
  Transmission Date: 20060501
  Serious: Yes (Hospitalization, Other)
  Sender: FDA-Public Use
  Company Number: US-JNJFOC-20051002675

PATIENT
  Sex: Male
  Weight: 68.04 kg

DRUGS (12)
  1. REMICADE [Suspect]
     Route: 042
  2. REMICADE [Suspect]
     Route: 042
  3. REMICADE [Suspect]
     Route: 042
  4. REMICADE [Suspect]
     Route: 042
  5. REMICADE [Suspect]
     Route: 042
  6. REMICADE [Suspect]
     Route: 042
  7. REMICADE [Suspect]
     Indication: RHEUMATOID ARTHRITIS
     Route: 042
  8. METHOTREXATE [Concomitant]
     Dosage: 0.5
  9. RELAFEN [Concomitant]
  10. FOLIC ACID [Concomitant]
  11. PLAVIX [Concomitant]
  12. CALCIUM GLUCONATE [Concomitant]

REACTIONS (1)
  - MENINGITIS LISTERIA [None]
